FAERS Safety Report 13440029 (Version 1)
Quarter: 2017Q2

REPORT INFORMATION
  Report Type: Spontaneous
  Country: PT (occurrence: PT)
  Receive Date: 20170413
  Receipt Date: 20170413
  Transmission Date: 20170830
  Serious: No
  Sender: FDA-Public Use
  Company Number: PT-LUPIN PHARMACEUTICALS INC.-2017-00858

PATIENT
  Age: 34 Year
  Sex: Female

DRUGS (9)
  1. PETHIDINE [Suspect]
     Active Substance: MEPERIDINE
     Indication: GENERAL ANAESTHESIA
     Dosage: UNK UNK,UNK,UNKNOWN
     Route: 065
  2. FENTANYL. [Suspect]
     Active Substance: FENTANYL
     Indication: GENERAL ANAESTHESIA
     Dosage: UNK UNK,UNK,UNKNOWN
     Route: 065
  3. NEOSTIGMINE [Suspect]
     Active Substance: NEOSTIGMINE
     Indication: GENERAL ANAESTHESIA
     Dosage: UNK UNK,UNK,UNKNOWN
     Route: 065
  4. MORPHINE [Suspect]
     Active Substance: MORPHINE
     Indication: GENERAL ANAESTHESIA
     Dosage: UNK UNK,UNK,UNKNOWN
     Route: 065
  5. ATROPINE. [Suspect]
     Active Substance: ATROPINE
     Indication: GENERAL ANAESTHESIA
     Dosage: UNK UNK,UNK,UNKNOWN
     Route: 065
  6. ROCURONIUM [Suspect]
     Active Substance: ROCURONIUM BROMIDE
     Indication: GENERAL ANAESTHESIA
     Dosage: UNK UNK,UNK,UNKNOWN
     Route: 065
  7. SEVOFLURANE. [Suspect]
     Active Substance: SEVOFLURANE
     Indication: GENERAL ANAESTHESIA
     Dosage: UNK UNK,UNK,UNKNOWN
     Route: 065
  8. PARACETAMOL [Suspect]
     Active Substance: ACETAMINOPHEN
     Indication: GENERAL ANAESTHESIA
     Dosage: UNK UNK,UNK,UNKNOWN
     Route: 065
  9. PROPOFOL. [Suspect]
     Active Substance: PROPOFOL
     Indication: GENERAL ANAESTHESIA
     Dosage: UNK UNK,UNK,UNKNOWN
     Route: 065

REACTIONS (1)
  - Hypotension [Unknown]
